FAERS Safety Report 6931975-4 (Version None)
Quarter: 2010Q3

REPORT INFORMATION
  Report Type: 
  Country: None (occurrence: None)
  Receive Date: 20100812
  Receipt Date: 20090325
  Transmission Date: 20110219
  Serious: No
  Sender: FDA-Public Use
  Company Number: 2009-01073

PATIENT
  Sex: Female

DRUGS (1)
  1. ZICAM NASAL PRODUCT [Suspect]
     Dosage: BI 2 DOSES X 1 DAY
     Dates: start: 20081101

REACTIONS (3)
  - AGEUSIA [None]
  - ANOSMIA [None]
  - BURNING SENSATION [None]
